FAERS Safety Report 23704555 (Version 4)
Quarter: 2024Q2

REPORT INFORMATION
  Report Type: Spontaneous
  Country: JP (occurrence: JP)
  Receive Date: 20240404
  Receipt Date: 20240522
  Transmission Date: 20240716
  Serious: Yes (Hospitalization, Other)
  Sender: FDA-Public Use
  Company Number: JP-NOVOPROD-1190932

PATIENT
  Age: 13 Year
  Sex: Male
  Weight: 37.3 kg

DRUGS (5)
  1. SOGROYA [Suspect]
     Active Substance: SOMAPACITAN-BECO
     Indication: Growth hormone deficiency
     Dosage: 5 MG, QW (ON EVERY SATURDAY)
     Route: 058
     Dates: start: 20230801, end: 202403
  2. LEVETIRACETAM [Concomitant]
     Active Substance: LEVETIRACETAM
     Indication: Epilepsy
     Dosage: 500 MG, QD
     Route: 048
     Dates: start: 201603
  3. PRANLUKAST [Concomitant]
     Active Substance: PRANLUKAST
     Indication: Asthma
     Dosage: 240 MG, QD
     Route: 048
     Dates: start: 201612
  4. IMIDAFENACIN [Concomitant]
     Active Substance: IMIDAFENACIN
     Indication: Enuresis
     Dosage: 0.1 MG, QD
     Route: 048
     Dates: start: 202003
  5. SAIZEN [Concomitant]
     Active Substance: SOMATROPIN
     Indication: Product used for unknown indication
     Dosage: UNK
     Dates: start: 2014

REACTIONS (4)
  - Diabetes mellitus [Recovering/Resolving]
  - Ileus [Recovered/Resolved]
  - Glucose tolerance impaired [Not Recovered/Not Resolved]
  - Insulin-like growth factor increased [Not Recovered/Not Resolved]

NARRATIVE: CASE EVENT DATE: 20231101
